FAERS Safety Report 4433624-6 (Version None)
Quarter: 2004Q3

REPORT INFORMATION
  Report Type: 
  Country: None (occurrence: None)
  Receive Date: 20040824
  Receipt Date: 20040810
  Transmission Date: 20050211
  Serious: Yes (Other)
  Sender: FDA-Public Use
  Company Number: 202990

PATIENT
  Age: 24 Month
  Sex: Male

DRUGS (1)
  1. AVONEX [Suspect]
     Indication: MULTIPLE SCLEROSIS RELAPSE
     Dates: start: 19991101

REACTIONS (2)
  - APRAXIA [None]
  - MATERNAL DRUGS AFFECTING FOETUS [None]
